FAERS Safety Report 4792730-7 (Version None)
Quarter: 2005Q4

REPORT INFORMATION
  Report Type: 
  Country: None (occurrence: None)
  Receive Date: 20051010
  Receipt Date: 20050908
  Transmission Date: 20060501
  Serious: Yes (Hospitalization)
  Sender: FDA-Public Use
  Company Number: US-MERCK-0509USA01195

PATIENT
  Age: 60 Year
  Sex: Female
  Weight: 70 kg

DRUGS (6)
  1. VIOXX [Suspect]
     Indication: ARTHRALGIA
     Route: 048
     Dates: start: 20010116, end: 20020115
  2. VIOXX [Suspect]
     Route: 048
     Dates: start: 20020116, end: 20030301
  3. DIAZIDE [Concomitant]
     Route: 065
  4. LOPRESSOR [Concomitant]
     Route: 065
  5. CALTRATE 600 PLUS VITAMIN D [Concomitant]
     Route: 065
  6. ACTONEL [Concomitant]
     Route: 065

REACTIONS (1)
  - MYOCARDIAL INFARCTION [None]
